FAERS Safety Report 18427783 (Version 2)
Quarter: 2020Q4

REPORT INFORMATION
  Report Type: Spontaneous
  Country: US (occurrence: US)
  Receive Date: 20201026
  Receipt Date: 20201101
  Transmission Date: 20210114
  Serious: Yes (Death, Hospitalization, Other)
  Sender: FDA-Public Use
  Company Number: US-009507513-2010USA007427

PATIENT
  Age: 81 Year
  Sex: Male
  Weight: 87.09 kg

DRUGS (3)
  1. PRINIVIL [Concomitant]
     Active Substance: LISINOPRIL
  2. METOPROLOL. [Concomitant]
     Active Substance: METOPROLOL
  3. KEYTRUDA [Suspect]
     Active Substance: PEMBROLIZUMAB
     Indication: SQUAMOUS CELL CARCINOMA OF LUNG
     Dosage: 400 MILLIGRAM, EVERY 6 WEEKS
     Route: 042
     Dates: start: 20200707, end: 20200707

REACTIONS (9)
  - Haematochezia [Unknown]
  - Death [Fatal]
  - Pulmonary oedema [Unknown]
  - Oedema [Unknown]
  - Confusional state [Unknown]
  - Fatigue [Unknown]
  - Delirium [Unknown]
  - Blood potassium increased [Unknown]
  - Hypertension [Unknown]

NARRATIVE: CASE EVENT DATE: 20200708
